FAERS Safety Report 17129768 (Version 1)
Quarter: 2019Q4

REPORT INFORMATION
  Report Type: Spontaneous
  Country: DE (occurrence: DE)
  Receive Date: 20191209
  Receipt Date: 20191209
  Transmission Date: 20200122
  Serious: Yes (Life-Threatening, Hospitalization)
  Sender: FDA-Public Use
  Company Number: DE-SA-2019SA336476

PATIENT
  Age: 78 Year
  Sex: Male

DRUGS (3)
  1. LEFLUNOMIDE. [Suspect]
     Active Substance: LEFLUNOMIDE
     Indication: RHEUMATOID ARTHRITIS
     Dosage: 10 MG, UNKNOWN
     Route: 065
     Dates: start: 201811, end: 201903
  2. RAMIPRIL. [Suspect]
     Active Substance: RAMIPRIL
     Indication: RHEUMATOID ARTHRITIS
     Dosage: UNK
     Route: 065
  3. RITUXIMAB. [Suspect]
     Active Substance: RITUXIMAB
     Indication: RHEUMATOID ARTHRITIS
     Dosage: LAST ADMINISTRATION OF RITUXIMAB: 28/AUG/2018
     Route: 065
     Dates: start: 20180828

REACTIONS (1)
  - Hypersensitivity [Recovered/Resolved]

NARRATIVE: CASE EVENT DATE: 201903
